FAERS Safety Report 8572085-2 (Version None)
Quarter: 2012Q3

REPORT INFORMATION
  Report Type: 
  Country: None (occurrence: None)
  Receive Date: 20120806
  Receipt Date: 20120801
  Transmission Date: 20120928
  Serious: Yes (Hospitalization, Other)
  Sender: FDA-Public Use
  Company Number: PHFR2012GB003473

PATIENT
  Sex: Male

DRUGS (3)
  1. CLOZARIL [Suspect]
     Indication: SCHIZOPHRENIA, PARANOID TYPE
     Dosage: 350 MG, DAILY
     Route: 048
     Dates: start: 19980101, end: 20120517
  2. ARIPIPRAZOLE [Concomitant]
     Indication: SCHIZOPHRENIA, PARANOID TYPE
     Dosage: 10 MG, DAILY
     Route: 048
     Dates: start: 20110526
  3. CLOZARIL [Suspect]

REACTIONS (5)
  - ERECTILE DYSFUNCTION [None]
  - TACHYCARDIA [None]
  - SCHIZOPHRENIA [None]
  - ANXIETY [None]
  - CHEST PAIN [None]
